FAERS Safety Report 18577471 (Version 1)
Quarter: 2020Q4

REPORT INFORMATION
  Report Type: Report from Study
  Country: NL (occurrence: NL)
  Receive Date: 20201204
  Receipt Date: 20201204
  Transmission Date: 20210114
  Serious: Yes (Other)
  Sender: FDA-Public Use
  Company Number: NL-GW PHARMA-201803NLGW0225

PATIENT

DRUGS (10)
  1. EPIDIOLEX [Suspect]
     Active Substance: CANNABIDIOL
     Indication: EPILEPSY
     Dosage: 25 MG/KG, 2050 MILLIGRAM, QD
     Route: 048
     Dates: start: 20180216, end: 20180322
  2. FRISIUM [Concomitant]
     Active Substance: CLOBAZAM
     Indication: EPILEPSY
     Dosage: 10 MILLIGRAM, BID
     Route: 048
     Dates: start: 20121029
  3. BELLADONA COMP [Concomitant]
     Indication: SEIZURE
     Dosage: 2 GRAM, PRN
     Route: 054
     Dates: start: 20170520
  4. DEPAKINE ENTERIC [Concomitant]
     Active Substance: VALPROATE SODIUM
     Indication: EPILEPSY
     Dosage: 150 MILLIGRAM, QD
     Route: 048
     Dates: start: 20121029, end: 20171130
  5. HEPATODORON [Concomitant]
     Indication: LIVER DISORDER
     Dosage: 2 DOSAGE FORMS, TID DOSAGE FORMS
     Route: 048
     Dates: start: 20151012
  6. SECALE/QUARTZ GLOBULI [Concomitant]
     Indication: MIGRAINE
     Dosage: 10 GRAIN, BID
     Route: 048
     Dates: start: 20160502
  7. DEPAKINE ENTERIC [Concomitant]
     Active Substance: VALPROATE SODIUM
     Dosage: 900 MILLIGRAM, BID
     Route: 048
     Dates: start: 20171130
  8. ORGANUM QUADRUPLEX [Concomitant]
     Indication: PRODUCT USED FOR UNKNOWN INDICATION
     Dosage: 10 GRAIN, QD
     Route: 048
     Dates: start: 20150925
  9. EPIDIOLEX [Suspect]
     Active Substance: CANNABIDIOL
     Dosage: 20 MG/KG, 1640 MILLIGRAM, QD
     Route: 048
     Dates: start: 20180322, end: 20180323
  10. VITAMIN D NOS [Concomitant]
     Active Substance: VITAMIN D NOS
     Indication: VITAMIN D DEFICIENCY
     Dosage: 800 IU (INTERNATIONAL UNIT), QD
     Route: 048
     Dates: start: 20171201

REACTIONS (4)
  - Aspartate aminotransferase increased [Recovered/Resolved]
  - Fatigue [Recovered/Resolved]
  - Hypophagia [Recovered/Resolved]
  - Alanine aminotransferase increased [Recovered/Resolved]

NARRATIVE: CASE EVENT DATE: 20180319
